FAERS Safety Report 11262095 (Version 2)
Quarter: 2015Q3

REPORT INFORMATION
  Report Type: Spontaneous
  Country: IT (occurrence: IT)
  Receive Date: 20150710
  Receipt Date: 20150717
  Transmission Date: 20151125
  Serious: Yes (Death, Other)
  Sender: FDA-Public Use
  Company Number: IT-FRESENIUS KABI-FK201503290

PATIENT
  Age: 39 Year
  Sex: Male

DRUGS (3)
  1. TRABECTEDIN [Suspect]
     Active Substance: TRABECTEDIN
     Indication: EWING^S SARCOMA RECURRENT
     Route: 042
  2. DEXAMETHASONE. [Concomitant]
     Active Substance: DEXAMETHASONE
  3. IRINOTECAN (MANUFACTURER UNKNOWN) [Suspect]
     Active Substance: IRINOTECAN
     Indication: EWING^S SARCOMA RECURRENT
     Route: 065

REACTIONS (5)
  - Cerebrovascular accident [Fatal]
  - Diarrhoea [Unknown]
  - Off label use [Unknown]
  - Haematotoxicity [Unknown]
  - Hepatotoxicity [Unknown]
